FAERS Safety Report 6940453-8 (Version None)
Quarter: 2010Q3

REPORT INFORMATION
  Report Type: 
  Country: None (occurrence: None)
  Receive Date: 20100825
  Receipt Date: 20100803
  Transmission Date: 20110219
  Serious: Yes (Death, Other)
  Sender: FDA-Public Use
  Company Number: GB-WYE-G03825509

PATIENT
  Sex: Female

DRUGS (4)
  1. EFFEXOR XR [Suspect]
     Indication: DEPRESSION
     Route: 048
     Dates: start: 20040101
  2. EFFEXOR XR [Interacting]
     Route: 048
  3. CLOZARIL [Interacting]
     Indication: SCHIZOPHRENIA
     Dosage: UNSPECIFIED DOSE
     Route: 048
     Dates: start: 20080101, end: 20090501
  4. CLOZARIL [Interacting]
     Indication: CONVULSION
     Dosage: 650 MG (FREQUENCY UNKNOWN)
     Route: 048
     Dates: start: 20090501

REACTIONS (5)
  - ANTIDEPRESSANT DRUG LEVEL INCREASED [None]
  - CIRCULATORY COLLAPSE [None]
  - CONVULSION [None]
  - DRUG INTERACTION [None]
  - DRUG TOXICITY [None]
